FAERS Safety Report 7432789-1 (Version None)
Quarter: 2011Q2

REPORT INFORMATION
  Report Type: 
  Country: None (occurrence: None)
  Receive Date: 20110422
  Receipt Date: 20110414
  Transmission Date: 20111010
  Serious: Yes (Other)
  Sender: FDA-Public Use
  Company Number: Z0004946D

PATIENT
  Sex: Male
  Weight: 67 kg

DRUGS (2)
  1. ADVAIR HFA [Suspect]
     Indication: CHRONIC OBSTRUCTIVE PULMONARY DISEASE
     Route: 055
     Dates: start: 20100312, end: 20100409
  2. GW685698 + GW642444 INHALATION POWDER [Suspect]
     Indication: CHRONIC OBSTRUCTIVE PULMONARY DISEASE
     Route: 055
     Dates: start: 20100409

REACTIONS (1)
  - MYELOID LEUKAEMIA [None]
